FAERS Safety Report 21416125 (Version 1)
Quarter: 2022Q4

REPORT INFORMATION
  Report Type: Spontaneous
  Country: US (occurrence: US)
  Receive Date: 20221006
  Receipt Date: 20221006
  Transmission Date: 20230113
  Serious: No
  Sender: FDA-Public Use
  Company Number: US-ALLERGAN-2133120US

PATIENT
  Sex: Male

DRUGS (2)
  1. VRAYLAR [Suspect]
     Active Substance: CARIPRAZINE
     Indication: Affective disorder
     Dosage: 1.5 IN 3MG CAPSULE PACK
     Dates: start: 20210901, end: 20210915
  2. SUBOXONE [Concomitant]
     Active Substance: BUPRENORPHINE HYDROCHLORIDE\NALOXONE HYDROCHLORIDE

REACTIONS (4)
  - Feeling abnormal [Recovering/Resolving]
  - Drug intolerance [Unknown]
  - Fatigue [Recovering/Resolving]
  - Drug ineffective [Unknown]
